FAERS Safety Report 8505903-4 (Version None)
Quarter: 2012Q3

REPORT INFORMATION
  Report Type: 
  Country: None (occurrence: None)
  Receive Date: 20120712
  Receipt Date: 20120703
  Transmission Date: 20120928
  Serious: Yes (Hospitalization)
  Sender: FDA-Public Use
  Company Number: JP-VERTEX PHARMACEUTICALS INC.-AE-2012-009996

PATIENT
  Age: 63 Year
  Sex: Female

DRUGS (3)
  1. REBETOL [Concomitant]
     Route: 048
     Dates: start: 20120515
  2. PEG-INTRON [Concomitant]
     Route: 058
     Dates: start: 20120515
  3. TELAVIC (TELAPREVIR) [Suspect]
     Route: 048
     Dates: start: 20120515

REACTIONS (1)
  - HAEMATURIA [None]
